FAERS Safety Report 5843508-4 (Version None)
Quarter: 2008Q3

REPORT INFORMATION
  Report Type: 
  Country: None (occurrence: None)
  Receive Date: 20080813
  Receipt Date: 20080812
  Transmission Date: 20090109
  Serious: Yes (Hospitalization)
  Sender: FDA-Public Use
  Company Number: FR-WYE-G01992208

PATIENT
  Age: 44 Year
  Sex: Male

DRUGS (3)
  1. RHINADVIL [Suspect]
     Dosage: UNKNOWN
     Route: 048
     Dates: start: 20080218, end: 20080222
  2. MUCOMYST [Suspect]
     Dosage: UNKNOWN
     Route: 048
     Dates: start: 20080218, end: 20080222
  3. AMOXICILLIN [Suspect]
     Dosage: UNKNOWN
     Route: 048
     Dates: start: 20080218, end: 20080222

REACTIONS (2)
  - EOSINOPHILIA [None]
  - TOXIC SKIN ERUPTION [None]
